FAERS Safety Report 6354722-6 (Version None)
Quarter: 2009Q3

REPORT INFORMATION
  Report Type: 
  Country: None (occurrence: None)
  Receive Date: 20090909
  Receipt Date: 20090825
  Transmission Date: 20100115
  Serious: Yes (Hospitalization)
  Sender: FDA-Public Use
  Company Number: MSTR-NO-0902S-0034

PATIENT
  Age: 45 Year
  Sex: Female
  Weight: 43.9 kg

DRUGS (1)
  1. METASTRON [Suspect]
     Indication: METASTATIC PAIN
     Dosage: 81.8 MBQ, SINGLE DOSE, I.V.
     Route: 042
     Dates: start: 20080812, end: 20080812

REACTIONS (3)
  - MALAISE [None]
  - METASTASES TO CENTRAL NERVOUS SYSTEM [None]
  - NAUSEA [None]
